FAERS Safety Report 23626589 (Version 1)
Quarter: 2024Q1

REPORT INFORMATION
  Report Type: Spontaneous
  Country: CH (occurrence: CH)
  Receive Date: 20240313
  Receipt Date: 20240313
  Transmission Date: 20240410
  Serious: Yes (Life-Threatening, Hospitalization)
  Sender: FDA-Public Use
  Company Number: None

PATIENT
  Age: 44 Year
  Sex: Female
  Weight: 92.1 kg

DRUGS (6)
  1. XANAX [Suspect]
     Active Substance: ALPRAZOLAM
     Indication: Product used for unknown indication
     Dosage: 1 MILLIGRAM (48 TABLETS, MIXED INTOXICATION. EXACT DATE OF INGESTION UNCLEAR; IN TOTAL)
     Route: 048
     Dates: start: 20231214, end: 20231214
  2. PAROXETINE [Suspect]
     Active Substance: PAROXETINE
     Indication: Product used for unknown indication
     Dosage: 20 MILLIGRAM (49 TABLETS, MIXED INTOXICATION. EXACT DATE OF INGESTION UNCLEAR; IN TOTAL)
     Route: 048
     Dates: start: 20231214, end: 20231214
  3. OLANZAPINE [Suspect]
     Active Substance: OLANZAPINE
     Indication: Product used for unknown indication
     Dosage: 10 MILLIGRAM (21 TABLETS, MIXED INTOXICATION. EXACT DATE OF INGESTION UNCLEAR; IN TOTAL)
     Route: 048
     Dates: start: 20231214, end: 20231214
  4. LATUDA [Suspect]
     Active Substance: LURASIDONE HYDROCHLORIDE
     Indication: Product used for unknown indication
     Dosage: 40 MILLIGRAM (30 TABLETS, MIXED INTOXICATION. EXACT DATE OF INGESTION UNCLEAR; IN TOTAL)
     Route: 048
     Dates: start: 20231214, end: 20231214
  5. LEVOTHYROXINE [Concomitant]
     Active Substance: LEVOTHYROXINE\LEVOTHYROXINE SODIUM
     Indication: Hypothyroidism
     Dosage: UNK
     Route: 065
  6. VITAMIN B12 [Concomitant]
     Active Substance: CYANOCOBALAMIN
     Indication: Anaemia
     Dosage: UNK
     Route: 065

REACTIONS (1)
  - Toxicity to various agents [Recovering/Resolving]

NARRATIVE: CASE EVENT DATE: 20231214
